FAERS Safety Report 6495681-5 (Version None)
Quarter: 2009Q4

REPORT INFORMATION
  Report Type: 
  Country: None (occurrence: None)
  Receive Date: 20091214
  Receipt Date: 20090811
  Transmission Date: 20100525
  Serious: Yes (Other)
  Sender: FDA-Public Use
  Company Number: US-BRISTOL-MYERS SQUIBB COMPANY-14723209

PATIENT
  Age: 4 Decade
  Sex: Female

DRUGS (2)
  1. ABILIFY [Suspect]
     Indication: MAJOR DEPRESSION
     Dosage: POSSIBLY 5MG PER DAY 2WKS BEFORE BPT
     Route: 048
  2. ANTIDEPRESSANT [Suspect]

REACTIONS (1)
  - DIABETES MELLITUS [None]
